FAERS Safety Report 21473481 (Version 1)
Quarter: 2022Q4

REPORT INFORMATION
  Report Type: Spontaneous
  Country: US (occurrence: US)
  Receive Date: 20221018
  Receipt Date: 20221018
  Transmission Date: 20230113
  Serious: No
  Sender: FDA-Public Use
  Company Number: US-ELI_LILLY_AND_COMPANY-US202210001738

PATIENT
  Age: 68 Year
  Sex: Male

DRUGS (2)
  1. BASAGLAR [Suspect]
     Active Substance: INSULIN GLARGINE
     Indication: Type 2 diabetes mellitus
     Dosage: 24 U, DAILY; AT NIGHT
     Dates: start: 202208
  2. BASAGLAR [Suspect]
     Active Substance: INSULIN GLARGINE
     Dosage: 24 U, DAILY; AT NIGHT
     Route: 065
     Dates: start: 202208

REACTIONS (2)
  - Blood glucose increased [Not Recovered/Not Resolved]
  - Product storage error [Unknown]

NARRATIVE: CASE EVENT DATE: 20220801
